FAERS Safety Report 20870694 (Version 2)
Quarter: 2022Q2

REPORT INFORMATION
  Report Type: Other
  Country: US (occurrence: None)
  Receive Date: 20220525
  Receipt Date: 20220527
  Transmission Date: 20220721
  Serious: Yes (Hospitalization, Other)
  Sender: FDA-Public Use
  Company Number: US-ROCHE-3098008

PATIENT
  Age: 64 Year
  Sex: Female

DRUGS (32)
  1. TERIFLUNOMIDE [Suspect]
     Active Substance: TERIFLUNOMIDE
     Indication: Multiple sclerosis
     Route: 065
     Dates: start: 20211119, end: 20220401
  2. PROBIOTICS NOS [Concomitant]
     Active Substance: PROBIOTICS NOS
     Dosage: ONGOING:YES
     Dates: start: 2009
  3. METHYLPHENIDATE [Concomitant]
     Active Substance: METHYLPHENIDATE
     Dosage: ONGOING:YES
     Dates: start: 1996
  4. AMANTADINE [Concomitant]
     Active Substance: AMANTADINE
     Dosage: ONGOING:YES
     Dates: start: 1996
  5. FLUTICASONE [Concomitant]
     Active Substance: FLUTICASONE
     Dates: start: 1996
  6. PREMPRO [Concomitant]
     Active Substance: ESTROGENS, CONJUGATED\MEDROXYPROGESTERONE ACETATE
     Indication: Hormone replacement therapy
     Dosage: ONGOING:YES
     Dates: start: 2013
  7. MIRALAX [Concomitant]
     Active Substance: POLYETHYLENE GLYCOL 3350
     Dosage: ONGOING:YES
     Dates: start: 2013
  8. LEVOTHYROXINE [Concomitant]
     Active Substance: LEVOTHYROXINE
     Dates: start: 2009
  9. IBUPROFEN [Concomitant]
     Active Substance: IBUPROFEN
     Dosage: ONGOING:YES
     Dates: start: 1996
  10. LOSARTAN [Concomitant]
     Active Substance: LOSARTAN
     Dosage: ONGOING:YES
     Dates: start: 1995
  11. CLONAZEPAM [Concomitant]
     Active Substance: CLONAZEPAM
     Dosage: ONGOING:YES
     Dates: start: 2013
  12. CYMBALTA [Concomitant]
     Active Substance: DULOXETINE HYDROCHLORIDE
     Dates: start: 2018
  13. VITAMIN A [Concomitant]
     Active Substance: VITAMIN A
     Dates: start: 2009
  14. VITAMIN C [Concomitant]
     Active Substance: ASCORBIC ACID
     Dates: start: 2009
  15. SELENIUM [Concomitant]
     Active Substance: SELENIUM
     Dates: start: 2009
  16. PANTOPRAZOLE [Concomitant]
     Active Substance: PANTOPRAZOLE
     Dates: start: 2013
  17. LIPITOR [Concomitant]
     Active Substance: ATORVASTATIN CALCIUM
     Dosage: ONGOING:YES
     Dates: start: 2018
  18. METOPROLOL [Concomitant]
     Active Substance: METOPROLOL
     Dates: start: 1995
  19. BENADRYL [Concomitant]
     Active Substance: DIPHENHYDRAMINE HYDROCHLORIDE
     Dates: start: 2013
  20. MECLIZINE [Concomitant]
     Active Substance: MECLIZINE HYDROCHLORIDE
     Indication: Vertigo
     Dates: start: 20211119
  21. FAMOTIDINE [Concomitant]
     Active Substance: FAMOTIDINE
     Dosage: ONGOING:YES
     Dates: start: 20220422
  22. COMPAZINE [Concomitant]
     Active Substance: PROCHLORPERAZINE MALEATE
     Indication: Nausea
     Dates: start: 20220408
  23. SIMETHICONE (DIMETHICONE) [Concomitant]
     Active Substance: DIMETHICONE
     Indication: Flatulence
     Dates: start: 20220408
  24. PEPCID [Concomitant]
     Active Substance: FAMOTIDINE
     Dates: start: 20220408
  25. SIMETHICONE (DIMETHICONE) [Concomitant]
     Active Substance: DIMETHICONE
     Dates: start: 20220408
  26. NATALIZUMAB [Concomitant]
     Active Substance: NATALIZUMAB
     Indication: Multiple sclerosis
     Dosage: REASON FOR STOPPING TREATMENT PML RISK
     Dates: start: 2013, end: 2021
  27. NATALIZUMAB [Concomitant]
     Active Substance: NATALIZUMAB
     Dates: start: 20220501
  28. CHOLECALCIFEROL [Concomitant]
     Active Substance: CHOLECALCIFEROL
     Dates: start: 2009
  29. VITAMIN E [Concomitant]
     Active Substance: .ALPHA.-TOCOPHEROL
  30. TRIAMCINOLONE [Concomitant]
     Active Substance: TRIAMCINOLONE
     Dates: start: 2013
  31. CHOLESTYRAMINE [Concomitant]
     Active Substance: CHOLESTYRAMINE
     Indication: Blood cholesterol increased
     Dates: start: 20220408
  32. ACETAMINOPHEN [Concomitant]
     Active Substance: ACETAMINOPHEN
     Indication: Pain
     Dates: start: 20220408

REACTIONS (2)
  - Diarrhoea [Recovered/Resolved]
  - Pancreatitis [Recovered/Resolved]

NARRATIVE: CASE EVENT DATE: 20220405
